FAERS Safety Report 17802356 (Version 1)
Quarter: 2020Q2

REPORT INFORMATION
  Report Type: Spontaneous
  Country: US (occurrence: US)
  Receive Date: 20200519
  Receipt Date: 20200519
  Transmission Date: 20200714
  Serious: No
  Sender: FDA-Public Use
  Company Number: US-NOVEN PHARMACEUTICALS, INC.-US2019000445

PATIENT

DRUGS (6)
  1. GABAPENTIN. [Concomitant]
     Active Substance: GABAPENTIN
  2. DAYTRANA [Suspect]
     Active Substance: METHYLPHENIDATE
     Dosage: 30 MG/9 HOURS
     Route: 062
     Dates: end: 201905
  3. DAYTRANA [Suspect]
     Active Substance: METHYLPHENIDATE
     Dosage: 30 MG/9 HOURS
     Dates: start: 2019
  4. DAYTRANA [Suspect]
     Active Substance: METHYLPHENIDATE
     Dosage: 20 MG/9 HOURS
     Route: 062
  5. DAYTRANA [Suspect]
     Active Substance: METHYLPHENIDATE
     Indication: ATTENTION DEFICIT HYPERACTIVITY DISORDER
     Dosage: 15 MG/9 HOURS
     Route: 062
     Dates: start: 201812
  6. EFFEXOR [Concomitant]
     Active Substance: VENLAFAXINE HYDROCHLORIDE

REACTIONS (16)
  - Application site discolouration [Not Recovered/Not Resolved]
  - Application site pruritus [Unknown]
  - Hyperhidrosis [Unknown]
  - Product quality issue [Unknown]
  - Product storage error [Recovered/Resolved]
  - Product administration error [Unknown]
  - Product prescribing error [Not Recovered/Not Resolved]
  - Application site pain [Unknown]
  - Application site irritation [Not Recovered/Not Resolved]
  - Off label use [Not Recovered/Not Resolved]
  - Therapy cessation [Recovered/Resolved]
  - Application site rash [Not Recovered/Not Resolved]
  - Product adhesion issue [Not Recovered/Not Resolved]
  - Wrong technique in product usage process [Unknown]
  - Application site exfoliation [Not Recovered/Not Resolved]
  - Application site erythema [Not Recovered/Not Resolved]

NARRATIVE: CASE EVENT DATE: 201812
